FAERS Safety Report 15423381 (Version 1)
Quarter: 2018Q3

REPORT INFORMATION
  Report Type: Spontaneous
  Country: IN (occurrence: IN)
  Receive Date: 20180925
  Receipt Date: 20180925
  Transmission Date: 20181010
  Serious: Yes (Life-Threatening, Hospitalization, Other)
  Sender: FDA-Public Use
  Company Number: IN-LUPIN PHARMACEUTICALS INC.-2018-06512

PATIENT
  Age: 67 Year
  Sex: Female

DRUGS (2)
  1. MORPHINE [Suspect]
     Active Substance: MORPHINE
     Indication: ABDOMINAL PAIN
     Dosage: 5 MG, EVERY 4 HOURS
     Route: 048
  2. PARACETAMOL [Concomitant]
     Active Substance: ACETAMINOPHEN
     Indication: ABDOMINAL PAIN
     Dosage: 500 MG, QID
     Route: 065

REACTIONS (6)
  - Loss of consciousness [Recovered/Resolved]
  - Hypoglycaemia [None]
  - Toxicity to various agents [Unknown]
  - Somnolence [Recovered/Resolved]
  - Overdose [Unknown]
  - Metabolic acidosis [None]
